FAERS Safety Report 7757921-1 (Version None)
Quarter: 2011Q3

REPORT INFORMATION
  Report Type: 
  Country: None (occurrence: None)
  Receive Date: 20110919
  Receipt Date: 20110906
  Transmission Date: 20111222
  Serious: No
  Sender: FDA-Public Use
  Company Number: US-B.I. PHARMACEUTICALS,INC./RIDGEFIELD-2011-BP-21645BP

PATIENT
  Age: 72 Year
  Sex: Female

DRUGS (3)
  1. FISH OIL [Concomitant]
  2. COQ10 [Concomitant]
  3. PRADAXA [Suspect]
     Indication: ATRIAL FIBRILLATION
     Dosage: 300 MG
     Route: 048
     Dates: start: 20110701, end: 20110904

REACTIONS (6)
  - DYSPHAGIA [None]
  - COLD SWEAT [None]
  - SENSATION OF FOREIGN BODY [None]
  - DYSPNOEA [None]
  - SWOLLEN TONGUE [None]
  - DYSPHONIA [None]
